FAERS Safety Report 5629861-5 (Version None)
Quarter: 2008Q1

REPORT INFORMATION
  Report Type: 
  Country: None (occurrence: None)
  Receive Date: 20080214
  Receipt Date: 20080201
  Transmission Date: 20080703
  Serious: Yes (Hospitalization)
  Sender: FDA-Public Use
  Company Number: GB-DEXPHARM-20080082

PATIENT
  Age: 85 Year
  Sex: Female

DRUGS (9)
  1. OMEPRAZOLE [Suspect]
     Dosage: 20 MG MILLIGRAM(S) , ORAL
     Route: 048
     Dates: end: 20080119
  2. CITALOPRAM HYDROBROMIDE [Suspect]
     Indication: DEPRESSION
     Dosage: 20 MG MILLIGRAMS(S), ORAL
     Route: 048
  3. ALENDRONATE SODIUM [Concomitant]
  4. ASPIRIN [Concomitant]
  5. ATENOLOL [Concomitant]
  6. CALCICHEW D3 (CALCIUM CARBONATE, CHOLECALCIFEROL, VITAMIN D3) [Concomitant]
  7. IRBESARTAN [Concomitant]
  8. MOXONIDINE [Concomitant]
  9. TEMAZEPAM [Concomitant]

REACTIONS (1)
  - HYPONATRAEMIA [None]
